FAERS Safety Report 8350164-2 (Version None)
Quarter: 2012Q2

REPORT INFORMATION
  Report Type: 
  Country: None (occurrence: None)
  Receive Date: 20120510
  Receipt Date: 20120508
  Transmission Date: 20120825
  Serious: Yes (Other)
  Sender: FDA-Public Use
  Company Number: IE-ROCHE-1063722

PATIENT
  Age: 90 Year
  Sex: Female

DRUGS (1)
  1. MABTHERA [Suspect]
     Indication: NEOPLASM MALIGNANT

REACTIONS (2)
  - CHILLS [None]
  - WHEEZING [None]
